FAERS Safety Report 7888399-5 (Version None)
Quarter: 2011Q4

REPORT INFORMATION
  Report Type: 
  Country: None (occurrence: None)
  Receive Date: 20111101
  Receipt Date: 20111018
  Transmission Date: 20120403
  Serious: Yes (Life-Threatening, Hospitalization)
  Sender: FDA-Public Use
  Company Number: AUR-APL-2011-05569

PATIENT
  Age: 78 Year
  Sex: Male

DRUGS (7)
  1. METFORMIN HCL [Suspect]
     Indication: DIABETES MELLITUS
     Dosage: 2000 MG (1000 MG, 2 IN 1 D), ORAL
     Route: 048
     Dates: end: 20111007
  2. AMARYL [Concomitant]
  3. METOPROLOL SUCCINATE [Concomitant]
  4. EFAVIRENZ [Concomitant]
  5. VIREAD [Suspect]
     Indication: HIV INFECTION
     Dosage: 245 MG 9245 MG, 1 IN 1 D), ORAL
     Route: 048
     Dates: start: 20110511, end: 20111007
  6. CENTYL MED KALIUMKLORID (SALURES-K) [Concomitant]
  7. EPIVIR [Concomitant]

REACTIONS (4)
  - LACTIC ACIDOSIS [None]
  - DIALYSIS [None]
  - RENAL FAILURE [None]
  - INTESTINAL ISCHAEMIA [None]
